FAERS Safety Report 6874609-X (Version None)
Quarter: 2010Q3

REPORT INFORMATION
  Report Type: 
  Country: None (occurrence: None)
  Receive Date: 20100722
  Receipt Date: 20100715
  Transmission Date: 20110219
  Serious: Yes (Hospitalization)
  Sender: FDA-Public Use
  Company Number: 8050677

PATIENT
  Sex: Female

DRUGS (10)
  1. CERTOLIZUMAB PEGOL (CERTOLIZUMAB PEGOL) [Suspect]
     Indication: CROHN'S DISEASE
     Dosage: (SUBCUTANEOUS)
     Route: 058
  2. PREDNISOLONE [Concomitant]
  3. ALENDRONATE SODIUM [Concomitant]
  4. FERROUS SULPHATE /00023503/ [Concomitant]
  5. CALCIUM [Concomitant]
  6. DOXAZOSIN [Concomitant]
  7. DICLOFENAC [Concomitant]
  8. AMLODIPINE [Concomitant]
  9. OXYCONTIN [Concomitant]
  10. OXYCODONE HCL [Concomitant]

REACTIONS (3)
  - ALPHA HAEMOLYTIC STREPTOCOCCAL INFECTION [None]
  - DEVICE RELATED INFECTION [None]
  - STAPHYLOCOCCAL INFECTION [None]
